FAERS Safety Report 10432986 (Version 1)
Quarter: 2014Q3

REPORT INFORMATION
  Report Type: Spontaneous
  Country: US (occurrence: None)
  Receive Date: 20140904
  Receipt Date: 20140904
  Transmission Date: 20150326
  Serious: Yes (Hospitalization)
  Sender: FDA-Public Use
  Company Number: None

PATIENT
  Age: 34 Year
  Sex: Female
  Weight: 81.1 kg

DRUGS (1)
  1. CEFTAROLINE [Suspect]
     Active Substance: CEFTAROLINE
     Indication: WOUND INFECTION STAPHYLOCOCCAL
     Route: 042
     Dates: start: 201406, end: 201408

REACTIONS (2)
  - Neurotoxicity [None]
  - Seizure like phenomena [None]

NARRATIVE: CASE EVENT DATE: 20140821
